FAERS Safety Report 8736760 (Version 5)
Quarter: 2013Q1

REPORT INFORMATION
  Report Type: Report from Study
  Country: US (occurrence: US)
  Receive Date: 20120822
  Receipt Date: 20130103
  Transmission Date: 20140127
  Serious: Yes (Hospitalization)
  Sender: FDA-Public Use
  Company Number: US-ACTELION-A-NJ2012-70202

PATIENT
  Age: 69 Year
  Sex: Female

DRUGS (2)
  1. VELETRI [Suspect]
     Indication: PULMONARY ARTERIAL HYPERTENSION
     Dosage: 38 NG/KG, PER MIN
     Route: 041
     Dates: start: 20100827
  2. SILDENAFIL [Concomitant]

REACTIONS (3)
  - Lung infection [Unknown]
  - Dyspnoea [Unknown]
  - Upper respiratory tract infection [Unknown]
